FAERS Safety Report 14872751 (Version 7)
Quarter: 2018Q4

REPORT INFORMATION
  Report Type: Report from Study
  Country: DE (occurrence: DE)
  Receive Date: 20180510
  Receipt Date: 20180911
  Transmission Date: 20190204
  Serious: Yes (Death, Life-Threatening, Hospitalization, Other)
  Sender: FDA-Public Use
  Company Number: DE-CONCORDIA PHARMACEUTICALS INC.-E2B_00011468

PATIENT
  Age: 73 Year
  Sex: Female
  Weight: 69 kg

DRUGS (60)
  1. CIPROFLOXACIN HYDROCHLORIDE TABLET [Suspect]
     Active Substance: CIPROFLOXACIN HYDROCHLORIDE
     Dosage: 250 MG, BID?LAST DOSE ON 11/JUL/2001
     Route: 048
     Dates: end: 20010711
  2. PLAVIX [Suspect]
     Active Substance: CLOPIDOGREL BISULFATE
     Indication: CORONARY ARTERY DISEASE
     Dosage: 75 MG, UNK?LAST DOSE ON 14/JUL/2001
     Route: 048
     Dates: start: 20010704, end: 20010714
  3. ZAROXOLYN [Suspect]
     Active Substance: METOLAZONE
     Indication: HYPERTENSION
     Dosage: 2 MG, UNK
     Route: 048
     Dates: end: 20010713
  4. CARBIMAZOLE [Suspect]
     Active Substance: CARBIMAZOLE
     Indication: HYPERTHYROIDISM
     Dosage: UNK UNK, Z, 20MG - 30MG?30 MG, (DOSE RANGED FROM 20-30 MG DAILY)?MOST RECENT DOSE:14/JUL/2001
     Route: 048
     Dates: end: 20010714
  5. METFORMIN HYDROCHLORIDE. [Suspect]
     Active Substance: METFORMIN HYDROCHLORIDE
     Indication: DIABETES MELLITUS
     Dosage: 7 MG, UNK
     Route: 048
  6. METFORMIN HYDROCHLORIDE. [Suspect]
     Active Substance: METFORMIN HYDROCHLORIDE
     Dosage: 250 MG, UNK
     Route: 048
     Dates: end: 20010714
  7. LANTUS [Suspect]
     Active Substance: INSULIN GLARGINE
     Indication: DIABETES MELLITUS
     Dosage: 16 IU, UNK
     Route: 058
     Dates: start: 20010616, end: 20010629
  8. PANTOPRAZOLE [Concomitant]
     Active Substance: PANTOPRAZOLE
     Indication: PROPHYLAXIS
     Dosage: 40 MG, 1D (DECREASED FROM 80 TO 40)
     Route: 048
     Dates: start: 20010616, end: 20010714
  9. CAPTOPRIL TABLET [Concomitant]
     Active Substance: CAPTOPRIL
     Indication: CORONARY ARTERY DISEASE
     Dosage: UNK
     Route: 048
     Dates: start: 20010616, end: 20010714
  10. DIGOXIN. [Suspect]
     Active Substance: DIGOXIN
     Dosage: 0.2 MG, 1D?MOST RECENT DOSE:14/JUL/2001
     Route: 048
     Dates: start: 20010703, end: 20010714
  11. AMPHOTERICIN B. [Suspect]
     Active Substance: AMPHOTERICIN B
     Dosage: 8 DF, QD
     Route: 048
     Dates: start: 20010703, end: 20010714
  12. NOVODIGAL (.BETA.-ACETYLDIGOXIN) [Suspect]
     Active Substance: .BETA.-ACETYLDIGOXIN
     Indication: CORONARY ARTERY DISEASE
     Dosage: DOSE REPORTED AS 1 DOSE FORM
     Route: 048
     Dates: start: 20010703
  13. PANTOZOL [Suspect]
     Active Substance: PANTOPRAZOLE SODIUM
     Route: 048
  14. YEAST DRIED [Suspect]
     Active Substance: YEAST
     Indication: DIARRHOEA
     Route: 048
     Dates: end: 20010714
  15. METFORMIN HYDROCHLORIDE. [Concomitant]
     Active Substance: METFORMIN HYDROCHLORIDE
     Indication: DIABETES MELLITUS
     Dosage: UNK
     Route: 048
     Dates: end: 20010714
  16. DIGOXIN. [Suspect]
     Active Substance: DIGOXIN
     Indication: CORONARY ARTERY DISEASE
     Dosage: 0.3 MG, QD
     Route: 048
     Dates: start: 20010703, end: 20010714
  17. NORVASC [Suspect]
     Active Substance: AMLODIPINE BESYLATE
     Indication: CORONARY ARTERY DISEASE
     Dosage: 5 MG, QD?MOST RECENT DOSE: 14/JUL/2001
     Route: 048
     Dates: start: 20010703, end: 20010714
  18. CIPROFLOXACIN HYDROCHLORIDE TABLET [Suspect]
     Active Substance: CIPROFLOXACIN HYDROCHLORIDE
     Indication: CHOLECYSTITIS
     Dosage: 500 MG, BID (2X/DAY)
     Route: 048
     Dates: start: 20010620, end: 20010628
  19. ASPIRIN 100 MG [Suspect]
     Active Substance: ASPIRIN
     Indication: CORONARY ARTERY DISEASE
     Dosage: 100 MG (DAILY DOSE), , ORAL
     Route: 048
     Dates: start: 20010616, end: 20010714
  20. RAMIPRIL. [Suspect]
     Active Substance: RAMIPRIL
     Indication: CORONARY ARTERY DISEASE
     Dosage: 5 MG, QD
     Route: 048
     Dates: end: 20010714
  21. RAMIPRIL. [Suspect]
     Active Substance: RAMIPRIL
     Dosage: 10 MG, QD
     Route: 048
     Dates: end: 20010714
  22. PANTOZOL [Suspect]
     Active Substance: PANTOPRAZOLE SODIUM
     Indication: PROPHYLAXIS
     Dosage: 40 MG, UNK,DOSE DECREASED 80 TO40MG DAILY
     Route: 048
     Dates: end: 20010714
  23. SORTIS TABLET [Suspect]
     Active Substance: ATORVASTATIN
     Indication: HYPERLIPIDAEMIA
     Dosage: 20 MG, UNK
     Route: 048
     Dates: end: 20010703
  24. AMARYL [Suspect]
     Active Substance: GLIMEPIRIDE
     Indication: DIABETES MELLITUS
     Dosage: 3 MG, UNK
     Route: 048
     Dates: end: 20010703
  25. LANTUS [Suspect]
     Active Substance: INSULIN GLARGINE
     Dosage: 16 IU, UNK?MOST RECENT DOSE:29/JUN/2001
     Route: 058
     Dates: start: 20010616, end: 20010629
  26. BISOPROLOL FUMARATE. [Concomitant]
     Active Substance: BISOPROLOL FUMARATE
     Indication: CORONARY ARTERY DISEASE
     Dosage: 8 MG, UNK
     Route: 048
     Dates: start: 20010616, end: 20010714
  27. HALDOL [Concomitant]
     Active Substance: HALOPERIDOL
     Indication: RESTLESSNESS
     Dosage: UNK
     Route: 016
     Dates: start: 20010713, end: 20010714
  28. PREDNISOLONE. [Suspect]
     Active Substance: PREDNISOLONE
     Indication: DYSPNOEA
     Dosage: 50 MG, UNK(ONCE), GALENICAL FORM: SOLUTION
     Route: 042
     Dates: start: 20010703, end: 20010703
  29. MOLSIDOMINE [Suspect]
     Active Substance: MOLSIDOMINE
     Dosage: 8 MG, QD, 16MG-8MG (8 MG, (DOSE REDUCED FROM 16 TO 8 MG DAILY)
     Route: 048
     Dates: start: 20010703, end: 20010714
  30. METOCLOPRAMIDE. [Suspect]
     Active Substance: METOCLOPRAMIDE
     Dosage: 7 MG, 1D?MOST RECENT DOSE:12/JUL/2001
     Route: 048
     Dates: start: 20010704, end: 20010712
  31. AMPHOTERICIN B. [Suspect]
     Active Substance: AMPHOTERICIN B
     Indication: ANTIFUNGAL PROPHYLAXIS
     Dosage: 200 MG, UNK;?DOSE FORM STATED AS PIPETTES
     Route: 048
     Dates: start: 20010703, end: 20010714
  32. PERENTEROL [Suspect]
     Active Substance: SACCHAROMYCES CEREVISIAE
     Indication: DIARRHOEA
     Dosage: 300 MG, UNK, 100 TO 300 MG?MOST RECENT DOSE:14/JUL/2001
     Route: 048
     Dates: end: 20010714
  33. PERENTEROL [Suspect]
     Active Substance: SACCHAROMYCES CEREVISIAE
     Dosage: 100 MG, UNK, 100 TO 300 MG
     Route: 048
     Dates: end: 20010714
  34. DECORTIN [Suspect]
     Active Substance: PREDNISONE
     Indication: DYSPNOEA
     Dosage: 50 MG, QD
     Route: 042
     Dates: start: 20010703, end: 20010703
  35. RAMIPRIL. [Concomitant]
     Active Substance: RAMIPRIL
     Dosage: 10 MG, UNK
     Route: 048
     Dates: start: 20010616, end: 20010714
  36. HALDOL [Concomitant]
     Active Substance: HALOPERIDOL
     Route: 048
     Dates: start: 20010713, end: 20010714
  37. METOCLOPRAMIDE. [Suspect]
     Active Substance: METOCLOPRAMIDE
     Indication: NAUSEA
     Dosage: 7 GTT, 1D
     Route: 048
     Dates: start: 20010704, end: 20010712
  38. SODIUM PERCHLORATE [Concomitant]
     Active Substance: SODIUM PERCHLORATE
     Indication: HYPERTHYROIDISM
     Dosage: 688 MG, UNK(TOTAL DAILY DOSE RANGED FROM 1376.8 MG TO 2065.2 MG))
     Route: 048
     Dates: start: 20010618, end: 20010714
  39. POTASSIUM CHLORIDE. [Concomitant]
     Active Substance: POTASSIUM CHLORIDE
     Indication: ELECTROLYTE IMBALANCE
     Dosage: 1500 MG, UNK
     Route: 048
     Dates: start: 20010703, end: 20010714
  40. MOLSIDOMINE [Suspect]
     Active Substance: MOLSIDOMINE
     Indication: CORONARY ARTERY DISEASE
     Dosage: 16 MG, UNK,16-8MG
     Route: 048
     Dates: start: 20010703, end: 20010714
  41. FRAGMIN [Suspect]
     Active Substance: DALTEPARIN SODIUM
     Indication: THROMBOSIS PROPHYLAXIS
     Dosage: 2500 IU (DAILY DOSE), , SUBCUTANEOUS
     Route: 058
     Dates: start: 20010703, end: 20010714
  42. HALDOL [Suspect]
     Active Substance: HALOPERIDOL
     Indication: RESTLESSNESS
     Dosage: UNK
     Route: 048
     Dates: end: 20010714
  43. LASIX [Suspect]
     Active Substance: FUROSEMIDE
     Dosage: 80 MG (DAILY DOSE), , INTRAVENOUS
     Route: 042
     Dates: start: 20010703, end: 20010714
  44. CARBIMAZOLE [Concomitant]
     Active Substance: CARBIMAZOLE
     Indication: HYPERTHYROIDISM
     Dosage: UNK UNK, Z, 20MG - 30MG
     Route: 048
     Dates: start: 20010621, end: 20010714
  45. GLIMEPIRIDE. [Concomitant]
     Active Substance: GLIMEPIRIDE
     Indication: DIABETES MELLITUS
     Route: 048
     Dates: start: 20010703
  46. EUNERPAN [Suspect]
     Active Substance: MELPERONE HYDROCHLORIDE
     Indication: RESTLESSNESS
     Dosage: 105 MG, 1D,FROM 80-105MG
     Route: 048
     Dates: end: 20010712
  47. DIAZEPAM. [Suspect]
     Active Substance: DIAZEPAM
     Indication: RESTLESSNESS
     Dosage: 15 MG, UNK
     Route: 048
     Dates: start: 20010616, end: 20010703
  48. CAPTOPRIL TABLET [Suspect]
     Active Substance: CAPTOPRIL
     Indication: CORONARY ARTERY DISEASE
     Dosage: DOSE REPORTED AS 1 DF DAILY
     Route: 048
     Dates: end: 20010714
  49. LEXOTANIL [Concomitant]
     Active Substance: BROMAZEPAM
     Indication: RESTLESSNESS
     Dosage: 2 MG, UNK
     Route: 048
     Dates: start: 20010713, end: 20010714
  50. RAMIPRIL. [Concomitant]
     Active Substance: RAMIPRIL
     Indication: CORONARY ARTERY DISEASE
     Dosage: 10 MG, UNK
     Route: 048
     Dates: start: 20010616, end: 20010714
  51. NORVASC [Suspect]
     Active Substance: AMLODIPINE BESYLATE
     Dosage: 10 MG, QD
     Route: 048
     Dates: start: 20010703, end: 20010714
  52. ROCEPHIN [Suspect]
     Active Substance: CEFTRIAXONE SODIUM
     Indication: PYREXIA
     Dosage: 1 G, BID?MOST RECENT DOSE: 03/JUL/2001
     Route: 042
     Dates: start: 20010629, end: 20010703
  53. ISOSORBIDE MONONITRATE. [Suspect]
     Active Substance: ISOSORBIDE MONONITRATE
     Indication: CORONARY ARTERY DISEASE
     Dosage: UNKNOWN
     Route: 048
     Dates: start: 20010703, end: 20010714
  54. LASIX [Suspect]
     Active Substance: FUROSEMIDE
     Indication: HYPERTENSION
     Dosage: 120 MG, UNK, DOSE RANGED FROM 80 MG-120 MG
     Route: 042
     Dates: start: 20010703, end: 20010714
  55. PARACETAMOL [Suspect]
     Active Substance: ACETAMINOPHEN
     Indication: PAIN
     Dosage: 500 MG, UNK
     Route: 048
     Dates: end: 20010711
  56. DIAZEPAM. [Suspect]
     Active Substance: DIAZEPAM
     Dosage: 5 MG, UNK
     Route: 048
     Dates: end: 20010703
  57. TRANXENE [Suspect]
     Active Substance: CLORAZEPATE DIPOTASSIUM
     Indication: RESTLESSNESS
     Dosage: 10 MG, 1D?MOST RECENT DOSE:14/JUL/2001
     Route: 048
     Dates: end: 20010714
  58. CONCOR [Suspect]
     Active Substance: BISOPROLOL FUMARATE
     Indication: CORONARY ARTERY DISEASE
     Dosage: 8 MG, UNK?LAST DOSE ON 14/JUL/2001
     Route: 048
     Dates: end: 20010714
  59. IRENAT [Suspect]
     Active Substance: SODIUM PERCHLORATE
     Indication: HYPERTHYROIDISM
     Dosage: 688 MG, UNK(TOTAL DAILY DOSE RANGED FROM 1376.8 MG TO 2065.2 MG))?MOST RECENT DOSE: 14/JUL/2001
     Route: 048
     Dates: end: 20010714
  60. ATORVASTATIN CALCIUM. [Concomitant]
     Active Substance: ATORVASTATIN CALCIUM
     Indication: HYPERLIPIDAEMIA
     Dosage: UNK
     Route: 048
     Dates: start: 20010616, end: 20010703

REACTIONS (17)
  - Hyperthyroidism [Fatal]
  - Blister [Unknown]
  - Cholecystitis [Fatal]
  - Diarrhoea [Fatal]
  - Restlessness [Fatal]
  - Restlessness [Fatal]
  - Erythema [Unknown]
  - Multiple organ dysfunction syndrome [Fatal]
  - Condition aggravated [Fatal]
  - Dermatitis exfoliative [Unknown]
  - Toxic epidermal necrolysis [Fatal]
  - Electrolyte imbalance [Fatal]
  - Hyperthyroidism [Fatal]
  - Cholelithiasis [Fatal]
  - Respiratory disorder [Fatal]
  - Nausea [Fatal]
  - Diarrhoea [Unknown]

NARRATIVE: CASE EVENT DATE: 20010704
